FAERS Safety Report 5084657-0 (Version None)
Quarter: 2006Q3

REPORT INFORMATION
  Report Type: 
  Country: None (occurrence: None)
  Receive Date: 20060821
  Receipt Date: 20060815
  Transmission Date: 20061208
  Serious: Yes (Life-Threatening)
  Sender: FDA-Public Use
  Company Number: NL-BRISTOL-MYERS SQUIBB COMPANY-13475686

PATIENT
  Age: 59 Year
  Sex: Female
  Weight: 94 kg

DRUGS (3)
  1. APROVEL FILM-COATED TABS 300 MG [Suspect]
     Indication: HYPERTENSION
     Dates: start: 20040611
  2. APROVEL FILM-COATED TABS 300 MG [Suspect]
     Route: 048
     Dates: start: 20060502, end: 20060612
  3. DYTENZIDE [Concomitant]
     Dates: start: 20040423

REACTIONS (4)
  - COUGH [None]
  - LARYNGEAL OEDEMA [None]
  - THROAT IRRITATION [None]
  - THROAT TIGHTNESS [None]
